FAERS Safety Report 14835092 (Version 2)
Quarter: 2018Q2

REPORT INFORMATION
  Report Type: Spontaneous
  Country: US (occurrence: US)
  Receive Date: 20180501
  Receipt Date: 20180622
  Transmission Date: 20180711
  Serious: Yes (Other)
  Sender: FDA-Public Use
  Company Number: US-TEVA-2018-US-888703

PATIENT
  Age: 68 Year
  Sex: Male

DRUGS (3)
  1. MULTIVITAMIN [Concomitant]
     Active Substance: VITAMINS
  2. BABY ASPIRIN [Concomitant]
     Active Substance: ASPIRIN
  3. ATELVIA [Suspect]
     Active Substance: RISEDRONATE SODIUM
     Indication: OSTEITIS DEFORMANS
     Dosage: 35 MG, Q WEEK
     Route: 048
     Dates: start: 201803, end: 201804

REACTIONS (8)
  - Throat tightness [Unknown]
  - Abdominal discomfort [Unknown]
  - Oropharyngeal pain [Unknown]
  - Splenomegaly [Unknown]
  - Inappropriate schedule of drug administration [Unknown]
  - Abdominal distension [Unknown]
  - Diarrhoea [Unknown]
  - Gastrointestinal disorder [Unknown]
